FAERS Safety Report 8589472-9 (Version None)
Quarter: 2012Q3

REPORT INFORMATION
  Report Type: 
  Country: None (occurrence: None)
  Receive Date: 20120813
  Receipt Date: 20120807
  Transmission Date: 20120928
  Serious: Yes (Other)
  Sender: FDA-Public Use
  Company Number: US-VERTEX PHARMACEUTICALS INC.-AE-2012-010444

PATIENT
  Sex: Female
  Weight: 54.48 kg

DRUGS (4)
  1. INCIVEK [Suspect]
     Indication: HEPATITIS C
     Route: 048
     Dates: start: 20120628, end: 20120727
  2. PEGASYS [Concomitant]
     Route: 058
     Dates: start: 20120706
  3. RIBAVIRIN [Concomitant]
     Indication: HEPATITIS C
     Dates: start: 20120628, end: 20120727
  4. PEGASYS [Concomitant]
     Indication: HEPATITIS C
     Route: 058
     Dates: start: 20120628, end: 20120727

REACTIONS (5)
  - WHITE BLOOD CELL COUNT DECREASED [None]
  - MALAISE [None]
  - SKIN DISORDER [None]
  - RED BLOOD CELL COUNT DECREASED [None]
  - ANORECTAL DISCOMFORT [None]
